FAERS Safety Report 6296013-8 (Version None)
Quarter: 2009Q3

REPORT INFORMATION
  Report Type: 
  Country: None (occurrence: None)
  Receive Date: 20090804
  Receipt Date: 20090728
  Transmission Date: 20100115
  Serious: Yes (Hospitalization, Other)
  Sender: FDA-Public Use
  Company Number: JP-BRISTOL-MYERS SQUIBB COMPANY-14696082

PATIENT
  Age: 47 Year
  Sex: Male
  Weight: 91 kg

DRUGS (7)
  1. ERBITUX [Suspect]
     Indication: RECTAL CANCER
     Dosage: 31MAR09-9JUN09(500MG) RECENT INF:16JUN09-16JUN09, 400MG/1 IN 1 WEEK
     Route: 042
     Dates: start: 20090324, end: 20090616
  2. IRINOTECAN HCL [Concomitant]
     Indication: RECTAL CANCER
     Dosage: RECENT DOSE ON 16JUN09
     Route: 042
     Dates: start: 20090324
  3. VENA [Concomitant]
     Indication: PREMEDICATION
     Dosage: TABLET
     Route: 048
     Dates: start: 20090324, end: 20090616
  4. ORGADRONE [Concomitant]
     Indication: PREMEDICATION
     Route: 042
     Dates: start: 20090324, end: 20090616
  5. GRANISETRON HCL [Concomitant]
     Indication: ANTIEMETIC SUPPORTIVE CARE
     Route: 065
     Dates: start: 20090324
  6. NORVASC [Concomitant]
     Indication: HYPERTENSION
     Dosage: TABLET
     Route: 048
  7. NU-LOTAN [Concomitant]
     Indication: HYPERTENSION
     Route: 048

REACTIONS (1)
  - SKIN NECROSIS [None]
